FAERS Safety Report 7516983-7 (Version None)
Quarter: 2011Q2

REPORT INFORMATION
  Report Type: 
  Country: None (occurrence: None)
  Receive Date: 20110601
  Receipt Date: 20110523
  Transmission Date: 20111010
  Serious: Yes (Other)
  Sender: FDA-Public Use
  Company Number: US-AMGEN-USASP2011024208

PATIENT
  Age: 84 Year
  Sex: Female

DRUGS (9)
  1. SINGULAIR [Concomitant]
  2. SYNTHROID [Concomitant]
  3. ZYRTEC [Concomitant]
  4. LEXAPRO [Concomitant]
  5. VITAMIN D [Concomitant]
  6. NEURONTIN [Concomitant]
     Dosage: UNK UNK, BID
  7. ACIPHEX [Concomitant]
  8. PROLIA [Suspect]
     Indication: OSTEOPOROSIS POSTMENOPAUSAL
     Dosage: UNK
     Route: 058
     Dates: start: 20110215, end: 20110215
  9. NIACIN [Concomitant]

REACTIONS (3)
  - UNEVALUABLE EVENT [None]
  - RASH VESICULAR [None]
  - CYSTITIS [None]
